FAERS Safety Report 25609575 (Version 1)
Quarter: 2025Q3

REPORT INFORMATION
  Report Type: Spontaneous
  Country: US (occurrence: US)
  Receive Date: 20250728
  Receipt Date: 20250728
  Transmission Date: 20251020
  Serious: No
  Sender: INSUD PHARMA
  Company Number: US-INSUD PHARMA-2507US05841

PATIENT

DRUGS (2)
  1. CLOBETASOL [Suspect]
     Active Substance: CLOBETASOL
     Indication: Arthropod bite
     Route: 061
     Dates: start: 202504, end: 20250714
  2. CLOBETASOL [Suspect]
     Active Substance: CLOBETASOL
     Indication: Skin discolouration
     Route: 061
     Dates: start: 202504, end: 20250714

REACTIONS (2)
  - Therapeutic product effect decreased [Unknown]
  - Intentional product misuse [Unknown]

NARRATIVE: CASE EVENT DATE: 20250101
